FAERS Safety Report 6298781-8 (Version None)
Quarter: 2009Q3

REPORT INFORMATION
  Report Type: 
  Country: None (occurrence: None)
  Receive Date: 20090805
  Receipt Date: 20090805
  Transmission Date: 20100115
  Serious: Yes (Other)
  Sender: FDA-Public Use
  Company Number: None

PATIENT
  Sex: Female
  Weight: 62.1428 kg

DRUGS (1)
  1. ACTONEL [Suspect]
     Indication: OSTEOPENIA
     Dosage: 150 MG MONTHLY MOUTH
     Route: 048
     Dates: start: 20090703

REACTIONS (8)
  - BONE PAIN [None]
  - CHEST PAIN [None]
  - CONDITION AGGRAVATED [None]
  - DYSPEPSIA [None]
  - PYREXIA [None]
  - RASH [None]
  - STOMATITIS [None]
  - SWOLLEN TONGUE [None]
